FAERS Safety Report 5016310-3 (Version None)
Quarter: 2006Q2

REPORT INFORMATION
  Report Type: 
  Country: None (occurrence: None)
  Receive Date: 20060525
  Receipt Date: 20060511
  Transmission Date: 20061013
  Serious: Yes (Hospitalization)
  Sender: FDA-Public Use
  Company Number: FR200605002240

PATIENT
  Age: 77 Year
  Sex: Female
  Weight: 65 kg

DRUGS (9)
  1. GEMZAR [Suspect]
     Dosage: 1000 MG, OTHER, INTRAVENOUS
     Route: 042
     Dates: start: 20060307, end: 20060307
  2. ELOXATINE /FRA/ (OXALIPLATIN) [Concomitant]
  3. PLITICAN (ALIZAPRIDE HYDROCHLORIDE) [Concomitant]
  4. SOLU-MEDROL [Concomitant]
  5. ZOFRAN [Concomitant]
  6. SERMION (NICERGOLINE) [Concomitant]
  7. TRANXENE [Concomitant]
  8. DIOVENOR (DIOSMIN) [Concomitant]
  9. LUDIOMIL /SCH/ (MAPROTILINE HYDROCHLORIDE) [Concomitant]

REACTIONS (5)
  - ASTHENIA [None]
  - BLOOD GLUCOSE INCREASED [None]
  - BODY TEMPERATURE INCREASED [None]
  - GENERAL PHYSICAL HEALTH DETERIORATION [None]
  - POLYDIPSIA [None]
